FAERS Safety Report 25279594 (Version 1)
Quarter: 2025Q2

REPORT INFORMATION
  Report Type: Spontaneous
  Country: CN (occurrence: CN)
  Receive Date: 20250507
  Receipt Date: 20250507
  Transmission Date: 20250717
  Serious: Yes (Other)
  Sender: KYOWA
  Company Number: CN-KYOWAKIRIN-2025KK008264

PATIENT

DRUGS (3)
  1. TOREMIFENE [Suspect]
     Active Substance: TOREMIFENE
     Indication: Breast cancer
     Dosage: (60 MG,1 D)
     Route: 048
     Dates: start: 20250123
  2. ABEMACICLIB [Concomitant]
     Active Substance: ABEMACICLIB
     Indication: Breast cancer
     Route: 048
     Dates: start: 20250123
  3. LEUPROLIDE ACETATE [Concomitant]
     Active Substance: LEUPROLIDE ACETATE
     Indication: Breast cancer
     Route: 058
     Dates: start: 20250123

REACTIONS (1)
  - Myelosuppression [Unknown]

NARRATIVE: CASE EVENT DATE: 20250422
